FAERS Safety Report 8120416-X (Version None)
Quarter: 2012Q1

REPORT INFORMATION
  Report Type: 
  Country: None (occurrence: None)
  Receive Date: 20120207
  Receipt Date: 20120123
  Transmission Date: 20120608
  Serious: Yes (Other)
  Sender: FDA-Public Use
  Company Number: FR-PFIZER INC-K201001541

PATIENT
  Age: 69 Year
  Sex: Male

DRUGS (12)
  1. ALTACE [Suspect]
     Indication: BLOOD PRESSURE INCREASED
     Dosage: 1.25 MG, 1X/DAY
     Route: 048
  2. MELOXICAM [Interacting]
     Indication: PLEURITIC PAIN
     Dosage: 7.5 MG, 1X/DAY
     Dates: start: 20100916
  3. ASPIRIN [Interacting]
     Indication: CARDIAC ARREST
  4. QUININE [Concomitant]
     Dosage: 1 DF, 1X/DAY
  5. ISOSORBIDE [Concomitant]
     Dosage: 10 MG, 1X/DAY AM
  6. FLUTICASONE PROPIONATE/SALMETEROL [Concomitant]
     Dosage: 500 MG, 1X/DAY
  7. BISOPROLOL [Interacting]
     Indication: BLOOD PRESSURE INCREASED
     Dosage: 1.25 MG, 1X/DAY
  8. ISOSORBIDE [Concomitant]
     Dosage: 20 MG, 1X/DAY PM
  9. TIOTROPIUM BROMIDE [Concomitant]
     Dosage: UNK
     Route: 055
  10. ASPIRIN [Interacting]
     Indication: MYOCARDIAL INFARCTION
     Dosage: 75 MG, 1X/DAY
  11. OMEPRAZOLE [Concomitant]
     Dosage: 20 MG, 1X/DAY
  12. VENTOLIN [Concomitant]
     Dosage: UNK

REACTIONS (9)
  - DELIRIUM [None]
  - CONFUSIONAL STATE [None]
  - DRUG INTERACTION [None]
  - DIARRHOEA [None]
  - SOMNOLENCE [None]
  - HALLUCINATION [None]
  - EYE MOVEMENT DISORDER [None]
  - GAIT DISTURBANCE [None]
  - URINE COLOUR ABNORMAL [None]
